FAERS Safety Report 24782707 (Version 1)
Quarter: 2024Q4

REPORT INFORMATION
  Report Type: Spontaneous
  Country: CN (occurrence: CN)
  Receive Date: 20241227
  Receipt Date: 20241227
  Transmission Date: 20250115
  Serious: Yes (Other)
  Sender: PFIZER
  Company Number: CN-PFIZER INC-PV202400167988

PATIENT
  Age: 20 Month
  Sex: Male
  Weight: 11.5 kg

DRUGS (1)
  1. METHOTREXATE SODIUM [Suspect]
     Active Substance: METHOTREXATE SODIUM
     Indication: Chemotherapy
     Dosage: 2500 MG, 1X/DAY
     Route: 041
     Dates: start: 20241213, end: 20241213

REACTIONS (5)
  - Mucocutaneous disorder [Recovering/Resolving]
  - Anal rash [Recovering/Resolving]
  - Oral disorder [Recovering/Resolving]
  - Rash [Not Recovered/Not Resolved]
  - Skin disorder [Recovering/Resolving]

NARRATIVE: CASE EVENT DATE: 20241201
